FAERS Safety Report 6954848-X (Version None)
Quarter: 2010Q3

REPORT INFORMATION
  Report Type: 
  Country: None (occurrence: None)
  Receive Date: 20100830
  Receipt Date: 20100416
  Transmission Date: 20110219
  Serious: Yes (Hospitalization, Other)
  Sender: FDA-Public Use
  Company Number: US-RANBAXY-2010US-33703

PATIENT

DRUGS (14)
  1. GANCICLOVIR [Suspect]
     Indication: ANTIVIRAL PROPHYLAXIS
     Dosage: 500 MG, TID
     Route: 048
     Dates: start: 20081204, end: 20090216
  2. ACYCLOVIR SODIUM [Suspect]
     Indication: ANTIVIRAL PROPHYLAXIS
     Dosage: 400 MG, BID
     Route: 048
     Dates: start: 20081204, end: 20090216
  3. MARIBAVIR (PLACEBO) [Suspect]
     Indication: ANTIVIRAL PROPHYLAXIS
     Dosage: 100 MG, BID
     Route: 048
     Dates: start: 20081204, end: 20090216
  4. BACTRIM [Concomitant]
     Indication: ANTIBIOTIC PROPHYLAXIS
     Route: 065
  5. BUDESONIDE [Concomitant]
     Indication: COLITIS ULCERATIVE
     Route: 065
  6. CITALOPRAM [Concomitant]
     Indication: AFFECTIVE DISORDER
     Route: 065
  7. CLOTRIMIZOLE [Concomitant]
     Indication: ANTIFUNGAL PROPHYLAXIS
     Route: 065
  8. GANCICLOVIR [Concomitant]
     Route: 065
  9. HYDROMORPHONE [Concomitant]
     Indication: PROCEDURAL PAIN
     Route: 065
  10. IRON SUCROSE [Concomitant]
     Indication: ANAEMIA
     Route: 065
  11. RANITIDINE [Concomitant]
     Indication: PROPHYLAXIS AGAINST GASTROINTESTINAL ULCER
     Route: 065
  12. TACROLIMUS [Concomitant]
     Indication: PROPHYLAXIS AGAINST TRANSPLANT REJECTION
     Route: 065
  13. URSODIAL [Concomitant]
     Indication: PROPHYLAXIS
     Route: 065
  14. HUMIRA [Concomitant]
     Indication: PRODUCT USED FOR UNKNOWN INDICATION
     Route: 065

REACTIONS (3)
  - COLITIS ULCERATIVE [None]
  - CYTOMEGALOVIRUS GASTROENTERITIS [None]
  - DRUG INEFFECTIVE [None]
